FAERS Safety Report 4317736-3 (Version None)
Quarter: 2004Q1

REPORT INFORMATION
  Report Type: 
  Country: None (occurrence: None)
  Receive Date: 20040315
  Receipt Date: 20040303
  Transmission Date: 20041129
  Serious: Yes (Hospitalization)
  Sender: FDA-Public Use
  Company Number: PHHO2004CH03412

PATIENT
  Sex: Male

DRUGS (6)
  1. LEPONEX [Suspect]
     Dosage: 300 MG, QD
     Dates: start: 20021201, end: 20030615
  2. LEPONEX [Suspect]
     Dosage: 150 MG, QD
     Dates: start: 20030616, end: 20030622
  3. LEPONEX [Suspect]
     Dosage: 100 MG, QD
     Dates: start: 20030623, end: 20030623
  4. LEPONEX [Suspect]
     Dosage: 75 MG, QD
     Dates: start: 20030624
  5. DEPAKENE [Concomitant]
  6. SEROPRAM [Concomitant]

REACTIONS (7)
  - COGNITIVE DISORDER [None]
  - CONFUSIONAL STATE [None]
  - DEMENTIA ALZHEIMER'S TYPE [None]
  - DEPRESSION [None]
  - DISORIENTATION [None]
  - DIZZINESS [None]
  - FATIGUE [None]
